FAERS Safety Report 7529328-3 (Version None)
Quarter: 2011Q2

REPORT INFORMATION
  Report Type: 
  Country: None (occurrence: None)
  Receive Date: 20110520
  Receipt Date: 20110316
  Transmission Date: 20111010
  Serious: No
  Sender: FDA-Public Use
  Company Number: 029413

PATIENT
  Age: 55 Year
  Sex: Male

DRUGS (3)
  1. LACOSAMIDE [Suspect]
     Dosage: (50 MG BID)
  2. LAMICTAL [Concomitant]
  3. KEPPRA [Suspect]

REACTIONS (3)
  - COGNITIVE DISORDER [None]
  - RASH [None]
  - AMNESIA [None]
